FAERS Safety Report 23605245 (Version 4)
Quarter: 2024Q2

REPORT INFORMATION
  Report Type: Report from Study
  Country: KR (occurrence: KR)
  Receive Date: 20240307
  Receipt Date: 20240523
  Transmission Date: 20240716
  Serious: Yes (Other)
  Sender: FDA-Public Use
  Company Number: KR-TAKEDA-2024TUS020553

PATIENT
  Sex: Male

DRUGS (6)
  1. BRIGATINIB [Suspect]
     Active Substance: BRIGATINIB
     Indication: Non-small cell lung cancer
     Dosage: 90 MILLIGRAM, QD
     Route: 065
     Dates: start: 20210330, end: 20210419
  2. BRIGATINIB [Suspect]
     Active Substance: BRIGATINIB
     Dosage: 180 MILLIGRAM, QD
     Route: 065
     Dates: start: 20210420
  3. NALOXONE HYDROCHLORIDE\OXYCODONE HYDROCHLORIDE [Concomitant]
     Active Substance: NALOXONE HYDROCHLORIDE\OXYCODONE HYDROCHLORIDE
     Indication: Cancer pain
     Dosage: UNK
     Route: 048
     Dates: start: 20210302
  4. OXYCODONE HYDROCHLORIDE [Concomitant]
     Active Substance: OXYCODONE HYDROCHLORIDE
     Indication: Cancer pain
     Dosage: 5 MILLIGRAM
     Route: 048
     Dates: start: 20210601
  5. HIVINAL GOLD [Concomitant]
     Indication: Prophylaxis
     Dosage: UNK
     Route: 048
     Dates: start: 20210601
  6. NEXIUM [Concomitant]
     Active Substance: ESOMEPRAZOLE MAGNESIUM
     Indication: Chronic gastritis
     Dosage: 40 MILLIGRAM
     Route: 048
     Dates: start: 20221018

REACTIONS (1)
  - Radiation pneumonitis [Recovered/Resolved]

NARRATIVE: CASE EVENT DATE: 20230314
